FAERS Safety Report 4280355-1 (Version None)
Quarter: 2004Q1

REPORT INFORMATION
  Report Type: 
  Country: None (occurrence: None)
  Receive Date: 20040127
  Receipt Date: 20040112
  Transmission Date: 20041129
  Serious: Yes (Hospitalization)
  Sender: FDA-Public Use
  Company Number: 2004-06564

PATIENT
  Age: 45 Year
  Sex: Female
  Weight: 48 kg

DRUGS (3)
  1. VIREAD [Suspect]
     Indication: HIV INFECTION
     Dosage: 300 MG QD PO
     Route: 048
     Dates: start: 20020701, end: 20030517
  2. LAMIVUDINE [Suspect]
     Indication: HIV INFECTION
     Dosage: 300 MG QD PO
     Route: 048
     Dates: start: 20020701, end: 20030517
  3. ZIAGEN [Suspect]
     Indication: HIV INFECTION
     Dosage: 600 MG
     Dates: start: 20020701, end: 20030517

REACTIONS (11)
  - BLOOD HIV RNA INCREASED [None]
  - DRUG TOLERANCE DECREASED [None]
  - FATIGUE [None]
  - HYPERSENSITIVITY [None]
  - LETHARGY [None]
  - NEUTROPENIA [None]
  - NEUTROPHILIA [None]
  - PAIN IN EXTREMITY [None]
  - PYREXIA [None]
  - RASH MACULO-PAPULAR [None]
  - TACHYCARDIA [None]
